FAERS Safety Report 22016772 (Version 4)
Quarter: 2023Q2

REPORT INFORMATION
  Report Type: Report from Study
  Country: GB (occurrence: GB)
  Receive Date: 20230221
  Receipt Date: 20230509
  Transmission Date: 20230721
  Serious: Yes (Other)
  Sender: FDA-Public Use
  Company Number: GB-ABBVIE-4215692

PATIENT
  Age: 62 Year
  Sex: Female

DRUGS (26)
  1. CARBIDOPA\LEVODOPA [Suspect]
     Active Substance: CARBIDOPA\LEVODOPA
     Indication: Parkinson^s disease
     Dosage: 20MGS/5MGS ; CR 2.6ML, CONTINUOUS;
     Route: 050
     Dates: start: 202303
  2. CARBIDOPA\LEVODOPA [Suspect]
     Active Substance: CARBIDOPA\LEVODOPA
     Dosage: MD:10, ED:1.4 MLS CR: 3.0 MLS, 20MGS/5MGS?FREQUENCY TEXT: CONTINUOUS
     Route: 050
     Dates: end: 2023
  3. CARBIDOPA\LEVODOPA [Suspect]
     Active Substance: CARBIDOPA\LEVODOPA
     Dosage: 20MGS/5MGS ; CR 2.6ML?FREQUENCY TEXT: CONTINUOUS
     Route: 050
  4. CARBIDOPA\LEVODOPA [Suspect]
     Active Substance: CARBIDOPA\LEVODOPA
     Dosage: MD:10.0, ED:1.4, CR: 3.1, 20MGS/5MGS?FREQUENCY TEXT: CONTINUOUS
     Route: 050
     Dates: start: 2023
  5. CARBIDOPA\LEVODOPA [Suspect]
     Active Substance: CARBIDOPA\LEVODOPA
     Dosage: CR 2.8ML, CONTINUOUS FIRST ADMINISTRATION DOSE DATE:2023?FREQUENCY TEXT: CONTINUOUS
     Route: 050
  6. CARBIDOPA\LEVODOPA [Suspect]
     Active Substance: CARBIDOPA\LEVODOPA
     Dosage: MD:10, ED:1.4 MLS CR: 3.0 MLS, 20MGS/5MGS; LAST ADMINISTARTION DOSE DATE:2023?FREQUENCY TEXT: CON...
     Route: 050
     Dates: start: 2023
  7. CARBIDOPA\LEVODOPA [Suspect]
     Active Substance: CARBIDOPA\LEVODOPA
     Dosage: MD 10.0 CR 2.6 ED 1.4;  FIRST AND LAST ADMINISTRATION DOSE DATE:2023?FREQUENCY TEXT: CONTINUOUS
     Route: 050
     Dates: start: 2023
  8. CARBIDOPA\LEVODOPA [Suspect]
     Active Substance: CARBIDOPA\LEVODOPA
     Dosage: CR 2.8ML?FREQUENCY TEXT: CONTINUOUS
     Route: 050
  9. OPICAPONE [Concomitant]
     Active Substance: OPICAPONE
     Indication: Product used for unknown indication
  10. SINEMET CR [Concomitant]
     Active Substance: CARBIDOPA\LEVODOPA
     Indication: Product used for unknown indication
     Dosage: 50/200 MGS
  11. SINEMET CR [Concomitant]
     Active Substance: CARBIDOPA\LEVODOPA
     Indication: Product used for unknown indication
     Dosage: 50/200 MGS
  12. SINEMET CR [Concomitant]
     Active Substance: CARBIDOPA\LEVODOPA
     Indication: Product used for unknown indication
     Dosage: 50/200 MGS , 1 TABLET AT 11 PM, CR
  13. SINEMET CR [Concomitant]
     Active Substance: CARBIDOPA\LEVODOPA
     Indication: Product used for unknown indication
     Dosage: 50/200 MGS
  14. FLUCLOXACILLIN [Concomitant]
     Active Substance: FLUCLOXACILLIN
     Indication: Parkinson^s disease
     Route: 048
     Dates: start: 202301
  15. ONGENTYS [Concomitant]
     Active Substance: OPICAPONE
     Indication: Product used for unknown indication
     Dosage: FREQUENCY TEXT: AT 11 PM; ONCE NIGHT
  16. BENSERAZIDE HYDROCHLORIDE\LEVODOPA [Concomitant]
     Active Substance: BENSERAZIDE HYDROCHLORIDE\LEVODOPA
     Indication: Product used for unknown indication
     Dosage: 25/100 1 TABLET AT 11 PM, CR;
  17. BENSERAZIDE HYDROCHLORIDE\LEVODOPA [Concomitant]
     Active Substance: BENSERAZIDE HYDROCHLORIDE\LEVODOPA
     Indication: Product used for unknown indication
     Dosage: 25/100
  18. BENSERAZIDE HYDROCHLORIDE\LEVODOPA [Concomitant]
     Active Substance: BENSERAZIDE HYDROCHLORIDE\LEVODOPA
     Indication: Product used for unknown indication
     Dosage: 25/100
  19. BENSERAZIDE HYDROCHLORIDE\LEVODOPA [Concomitant]
     Active Substance: BENSERAZIDE HYDROCHLORIDE\LEVODOPA
     Indication: Product used for unknown indication
     Dosage: FREQUENCY TEXT: 2 TABLETS BETWEEN 03:00-04:00 AM,
  20. BENSERAZIDE HYDROCHLORIDE\LEVODOPA [Concomitant]
     Active Substance: BENSERAZIDE HYDROCHLORIDE\LEVODOPA
     Indication: Product used for unknown indication
     Dosage: 25/100
  21. ACETAMINOPHEN [Concomitant]
     Active Substance: ACETAMINOPHEN
     Indication: Product used for unknown indication
     Dosage: FREQUENCY TEXT: PRN
  22. CARBIDOPA\LEVODOPA [Concomitant]
     Active Substance: CARBIDOPA\LEVODOPA
     Indication: Product used for unknown indication
     Dosage: 25/100MG X2
  23. CARBIDOPA\LEVODOPA [Concomitant]
     Active Substance: CARBIDOPA\LEVODOPA
     Indication: Product used for unknown indication
  24. CARBIDOPA\LEVODOPA [Concomitant]
     Active Substance: CARBIDOPA\LEVODOPA
     Indication: Product used for unknown indication
     Dosage: 50/200MG X1
  25. CARBIDOPA\LEVODOPA [Concomitant]
     Active Substance: CARBIDOPA\LEVODOPA
     Indication: Product used for unknown indication
     Dosage: 50/200MG X1
  26. RIVASTIGMINE [Concomitant]
     Active Substance: RIVASTIGMINE
     Indication: Product used for unknown indication

REACTIONS (32)
  - Surgery [Unknown]
  - Arthralgia [Unknown]
  - Freezing phenomenon [Unknown]
  - On and off phenomenon [Recovered/Resolved]
  - Tremor [Not Recovered/Not Resolved]
  - Weight decreased [Recovered/Resolved]
  - Drug ineffective [Not Recovered/Not Resolved]
  - Device connection issue [Recovered/Resolved]
  - Balance disorder [Unknown]
  - Hallucination [Not Recovered/Not Resolved]
  - Therapeutic product effect variable [Not Recovered/Not Resolved]
  - Fall [Unknown]
  - Gait inability [Recovering/Resolving]
  - Diarrhoea [Not Recovered/Not Resolved]
  - Parkinson^s disease [Unknown]
  - Unevaluable event [Unknown]
  - Arthropathy [Not Recovered/Not Resolved]
  - Therapeutic response shortened [Not Recovered/Not Resolved]
  - On and off phenomenon [Recovered/Resolved]
  - Arthritis infective [Not Recovered/Not Resolved]
  - Device dislocation [Recovered/Resolved]
  - Dyskinesia [Not Recovered/Not Resolved]
  - Depressed mood [Not Recovered/Not Resolved]
  - Tremor [Recovered/Resolved]
  - Poor quality sleep [Not Recovered/Not Resolved]
  - Infection [Unknown]
  - Device dislocation [Recovered/Resolved]
  - Feeling abnormal [Unknown]
  - Pain in extremity [Not Recovered/Not Resolved]
  - Device dislocation [Not Recovered/Not Resolved]
  - Arthritis [Unknown]
  - Device alarm issue [Unknown]

NARRATIVE: CASE EVENT DATE: 20221101
